FAERS Safety Report 24177452 (Version 1)
Quarter: 2024Q3

REPORT INFORMATION
  Report Type: Report from Study
  Country: IT (occurrence: None)
  Receive Date: 20240806
  Receipt Date: 20240806
  Transmission Date: 20241016
  Serious: Yes (Other)
  Sender: ASTRAZENECA
  Company Number: 2023A219415

PATIENT

DRUGS (1)
  1. SAPHNELO [Suspect]
     Active Substance: ANIFROLUMAB-FNIA
     Indication: Systemic lupus erythematosus
     Route: 042

REACTIONS (9)
  - Pulmonary embolism [Unknown]
  - Supraventricular tachycardia [Unknown]
  - Infection [Unknown]
  - Varicella zoster virus infection [Unknown]
  - Pericarditis [Unknown]
  - Infection [Unknown]
  - Neutropenia [Unknown]
  - Fatigue [Unknown]
  - COVID-19 [Unknown]
